FAERS Safety Report 26162321 (Version 1)
Quarter: 2025Q4

REPORT INFORMATION
  Report Type: Spontaneous
  Country: US (occurrence: US)
  Receive Date: 20251216
  Receipt Date: 20251216
  Transmission Date: 20260118
  Serious: No
  Sender: TEVA
  Company Number: US-TEVA-VS-3400227

PATIENT
  Age: 45 Year
  Sex: Female

DRUGS (1)
  1. TESTOSTERONE [Suspect]
     Active Substance: TESTOSTERONE
     Indication: Blood testosterone decreased
     Route: 065

REACTIONS (5)
  - Perfume sensitivity [Recovered/Resolved]
  - Obstructive airways disorder [Unknown]
  - Fatigue [Unknown]
  - Migraine [Unknown]
  - Skin irritation [Unknown]

NARRATIVE: CASE EVENT DATE: 20251126
